FAERS Safety Report 6315017-X (Version None)
Quarter: 2009Q3

REPORT INFORMATION
  Report Type: 
  Country: None (occurrence: None)
  Receive Date: 20090819
  Receipt Date: 20090807
  Transmission Date: 20100115
  Serious: Yes (Other)
  Sender: FDA-Public Use
  Company Number: CA-JNJFOC-20090604961

PATIENT
  Sex: Female

DRUGS (5)
  1. REMICADE [Suspect]
     Indication: CROHN'S DISEASE
     Route: 042
  2. PREVACID [Concomitant]
     Indication: DYSPEPSIA
  3. INDOMETHACIN [Concomitant]
     Indication: SPINAL DISORDER
  4. CORTISONE [Concomitant]
     Indication: SPINAL DISORDER
     Dosage: CORTISONE BLOCK EVERY 3- 4 MONTHS
  5. DILAUDID [Concomitant]
     Indication: PAIN
     Route: 048

REACTIONS (5)
  - ASTHENIA [None]
  - EATING DISORDER [None]
  - FATIGUE [None]
  - HYPERSOMNIA [None]
  - SPINAL DISORDER [None]
